FAERS Safety Report 7706690-X (Version None)
Quarter: 2011Q3

REPORT INFORMATION
  Report Type: 
  Country: None (occurrence: None)
  Receive Date: 20110824
  Receipt Date: 20110816
  Transmission Date: 20111222
  Serious: Yes (Other)
  Sender: FDA-Public Use
  Company Number: TR-JNJFOC-20110807900

PATIENT
  Age: 21 Year
  Sex: Female

DRUGS (6)
  1. ACTIQ [Suspect]
     Indication: PAIN
  2. LYRICA [Concomitant]
     Indication: PAIN
  3. HYDROMORPHONE HCL [Suspect]
     Indication: PAIN
     Route: 048
     Dates: start: 20110101
  4. TRAMADOL HCL [Concomitant]
     Indication: PAIN
  5. HYDROMORPHONE HCL [Suspect]
     Route: 048
     Dates: start: 20110101, end: 20110101
  6. DURAGESIC-100 [Suspect]
     Indication: PAIN
     Route: 062

REACTIONS (7)
  - NAUSEA [None]
  - HALLUCINATION, AUDITORY [None]
  - EYE SWELLING [None]
  - INAPPROPRIATE SCHEDULE OF DRUG ADMINISTRATION [None]
  - SWELLING FACE [None]
  - HALLUCINATION, VISUAL [None]
  - SOMNOLENCE [None]
